FAERS Safety Report 4705584-1 (Version None)
Quarter: 2005Q2

REPORT INFORMATION
  Report Type: 
  Country: None (occurrence: None)
  Receive Date: 20050629
  Receipt Date: 20040913
  Transmission Date: 20051028
  Serious: Yes (Hospitalization)
  Sender: FDA-Public Use
  Company Number: 200419009GDDC

PATIENT
  Age: 53 Year
  Sex: Female
  Weight: 59.8 kg

DRUGS (4)
  1. FLUOROURACIL [Suspect]
     Indication: BREAST CANCER
     Dosage: 780 MG/DAY IV
     Route: 042
     Dates: start: 20040818, end: 20040818
  2. EPIRUBICIN [Suspect]
     Indication: BREAST CANCER
     Dosage: 156 MG/DAY IV
     Route: 042
     Dates: start: 20040818, end: 20040818
  3. CYCLOPHOSPHAMIDE [Suspect]
     Indication: BREAST CANCER
     Dosage: 780 MG/DAY IV
     Route: 042
     Dates: start: 20040818, end: 20040818
  4. CELECOXIB [Suspect]
     Indication: BREAST CANCER
     Dosage: 800 MG/DAY PO
     Route: 048
     Dates: start: 20040813

REACTIONS (1)
  - GINGIVITIS [None]
